FAERS Safety Report 6331756-9 (Version None)
Quarter: 2009Q3

REPORT INFORMATION
  Report Type: 
  Country: None (occurrence: None)
  Receive Date: 20090826
  Receipt Date: 20090814
  Transmission Date: 20100115
  Serious: Yes (Other)
  Sender: FDA-Public Use
  Company Number: 2009-03339

PATIENT

DRUGS (2)
  1. VELCADE [Suspect]
     Indication: MULTIPLE MYELOMA
     Route: 048
  2. VORINOSTAT (SUBEROYLANILIDE HYDROXAMIC ACID) ORAL DRUG UNSPECIFIED FOR [Suspect]
     Indication: MULTIPLE MYELOMA
     Dosage: 500 MG, ORAL
     Route: 048

REACTIONS (2)
  - DRUG TOXICITY [None]
  - ELECTROCARDIOGRAM QT PROLONGED [None]
